FAERS Safety Report 14071336 (Version 1)
Quarter: 2017Q4

REPORT INFORMATION
  Report Type: Spontaneous
  Country: US (occurrence: None)
  Receive Date: 20171010
  Receipt Date: 20171010
  Transmission Date: 20180321
  Serious: No
  Sender: FDA-Public Use
  Company Number: None

PATIENT
  Age: 31 Year
  Sex: Female
  Weight: 63.5 kg

DRUGS (2)
  1. SKYLA [Suspect]
     Active Substance: LEVONORGESTREL
  2. PRENATAL VITAMIN [Concomitant]
     Active Substance: VITAMINS

REACTIONS (2)
  - Device dislocation [None]
  - Pain [None]

NARRATIVE: CASE EVENT DATE: 20170615
